FAERS Safety Report 8799592 (Version 1)
Quarter: 2012Q4

REPORT INFORMATION
  Report Type: Spontaneous
  Country: CA (occurrence: None)
  Receive Date: 20120914
  Receipt Date: 20120914
  Transmission Date: 20130627
  Serious: Yes (Death, Hospitalization)
  Sender: FDA-Public Use
  Company Number: DSA_59389_2012

PATIENT
  Age: 72 Year
  Sex: Female

DRUGS (1)
  1. METRONIDAZOLE (METRONIDAZOLE) [Suspect]
     Indication: PRODUCT USED FOR UNKNOWN INDICATION

REACTIONS (2)
  - Cerebellar syndrome [None]
  - Toxicity to various agents [None]
